FAERS Safety Report 9352044 (Version 2)
Quarter: 2013Q3

REPORT INFORMATION
  Report Type: Spontaneous
  Country: BR (occurrence: BR)
  Receive Date: 20130617
  Receipt Date: 20130814
  Transmission Date: 20140515
  Serious: Yes (Hospitalization, Other)
  Sender: FDA-Public Use
  Company Number: PHHY2013BR061585

PATIENT
  Age: 46 Year
  Sex: Female
  Weight: 85 kg

DRUGS (10)
  1. RITALINA [Suspect]
     Indication: ATTENTION DEFICIT/HYPERACTIVITY DISORDER
     Dosage: 1 DF, DAILY
     Route: 048
  2. RITALINA [Suspect]
     Dosage: 1 OR 2 DF, DAILY (EVENTUALLY TOOK AN ADDITIONAL TABLET)
     Route: 048
  3. RITALINA [Suspect]
     Dosage: 1 DF, DAILY
     Route: 048
     Dates: end: 201305
  4. RITALIN LA [Suspect]
     Indication: ATTENTION DEFICIT/HYPERACTIVITY DISORDER
     Dosage: 10 MG, DAILY
     Route: 048
  5. RITALIN LA [Suspect]
     Dosage: 30 MG, DAILY
     Route: 048
     Dates: end: 201212
  6. RITALIN LA [Suspect]
     Dosage: 10 MG, DAILY
     Route: 048
     Dates: end: 201305
  7. VALDOXAN [Concomitant]
     Dosage: 1 DF, DAILY
     Route: 048
     Dates: start: 201212
  8. LAMOTRIGINE [Concomitant]
     Dosage: 1 DF, DAILY
     Route: 048
     Dates: start: 201212
  9. EGIDE [Concomitant]
     Dosage: UNK UKN, UNK
     Dates: start: 20130605
  10. DAFORIN [Concomitant]
     Indication: DEPRESSION
     Dosage: 2 DF, UNK

REACTIONS (9)
  - Uterine cancer [Recovered/Resolved]
  - Hypothyroidism [Not Recovered/Not Resolved]
  - Panic disorder [Recovered/Resolved]
  - Agoraphobia [Recovered/Resolved]
  - Drug intolerance [Unknown]
  - Disturbance in attention [Recovered/Resolved]
  - Psychomotor hyperactivity [Recovered/Resolved]
  - Agitation [Recovered/Resolved]
  - Tremor [Unknown]
